FAERS Safety Report 10310932 (Version 1)
Quarter: 2014Q3

REPORT INFORMATION
  Report Type: Spontaneous
  Country: JP (occurrence: JP)
  Receive Date: 20140717
  Receipt Date: 20140717
  Transmission Date: 20150326
  Serious: Yes (Other)
  Sender: FDA-Public Use
  Company Number: PHHY2011JP120828

PATIENT
  Age: 77 Year
  Sex: Male

DRUGS (4)
  1. EXJADE [Suspect]
     Active Substance: DEFERASIROX
     Indication: MYELODYSPLASTIC SYNDROME
     Dosage: 1000 MG,
  2. EXJADE [Suspect]
     Active Substance: DEFERASIROX
     Dosage: 500 MG, PER 3 DAY
  3. EXJADE [Suspect]
     Active Substance: DEFERASIROX
     Dosage: 250 MG,
  4. EXJADE [Suspect]
     Active Substance: DEFERASIROX
     Dosage: 500 MG, PER DAY

REACTIONS (2)
  - Gastrointestinal haemorrhage [Unknown]
  - Blood creatinine increased [Unknown]
